FAERS Safety Report 7302942-6 (Version None)
Quarter: 2011Q1

REPORT INFORMATION
  Report Type: 
  Country: None (occurrence: None)
  Receive Date: 20110218
  Receipt Date: 20110214
  Transmission Date: 20110831
  Serious: Yes (Death)
  Sender: FDA-Public Use
  Company Number: US-ASTRAZENECA-2011SE08524

PATIENT
  Age: 24273 Day
  Sex: Male
  Weight: 95.3 kg

DRUGS (3)
  1. NITROGLYCERIN [Concomitant]
  2. CRESTOR [Suspect]
     Indication: BLOOD CHOLESTEROL INCREASED
     Dosage: DAILY
     Route: 048
  3. PLAVIX [Concomitant]

REACTIONS (2)
  - CARDIAC FAILURE [None]
  - ARTERIAL DISORDER [None]
